FAERS Safety Report 9389590 (Version 1)
Quarter: 2013Q3

REPORT INFORMATION
  Report Type: Spontaneous
  Country: US (occurrence: US)
  Receive Date: 20130708
  Receipt Date: 20130708
  Transmission Date: 20140515
  Serious: No
  Sender: FDA-Public Use
  Company Number: US-AMGEN-USASP2013044674

PATIENT
  Age: 70 Year
  Sex: Female
  Weight: 67.12 kg

DRUGS (9)
  1. ENBREL [Suspect]
     Indication: PSORIASIS
     Dosage: 50 MG, 2 TIMES/WK (72-96 HOURS APART)
     Route: 058
  2. HUMIRA [Concomitant]
     Dosage: UNK
  3. COZAAR [Concomitant]
     Dosage: 100 MG, UNK
  4. LIPITOR [Concomitant]
     Dosage: 20 MG, UNK
  5. MULTIVITAMINS, PLAIN [Concomitant]
     Dosage: UNK
  6. REPLESTA [Concomitant]
     Dosage: 50000 UNIT, UNK
  7. CALCIUM VIT D [Concomitant]
     Dosage: 500 UNK, UNK
  8. ASPIRIN (E.C.) [Concomitant]
     Dosage: 81 MG, UNK
  9. B12                                /00056201/ [Concomitant]
     Dosage: 1 MG, UNK

REACTIONS (6)
  - Hepatic enzyme increased [Recovered/Resolved]
  - Incorrect dose administered [Unknown]
  - Injection site injury [Not Recovered/Not Resolved]
  - Injection site haemorrhage [Recovered/Resolved]
  - Injection site pain [Not Recovered/Not Resolved]
  - Psoriasis [Not Recovered/Not Resolved]
